FAERS Safety Report 9934885 (Version 3)
Quarter: 2014Q4

REPORT INFORMATION
  Report Type: Report from Study
  Country: SE (occurrence: SE)
  Receive Date: 20140228
  Receipt Date: 20141114
  Transmission Date: 20150529
  Serious: Yes (Hospitalization)
  Sender: FDA-Public Use
  Company Number: PHHO2014SE002727

PATIENT
  Age: 81 Year
  Sex: Female
  Weight: 80 kg

DRUGS (12)
  1. WARFARIN [Concomitant]
     Active Substance: WARFARIN
     Indication: ANTICOAGULANT THERAPY
     Dosage: 2.5 MG, ACCORDING TO SPECIAL PRESCRIPTION
     Route: 048
     Dates: start: 20120425
  2. SIMVASTATIN. [Concomitant]
     Active Substance: SIMVASTATIN
     Indication: PROPHYLAXIS
     Dosage: 10 MG, (1 TABLET IN THE EVENING), QD
     Route: 048
     Dates: start: 20140304
  3. VAGIFEN [Concomitant]
     Indication: PRODUCT USED FOR UNKNOWN INDICATION
     Dosage: 10 UG, (1 VAGINAL TABLET DAILY FOR 2 WEEKS, THEN 1 VAGINAL TABLET TWICE PER WEEK)
     Route: 067
     Dates: start: 20110413
  4. IMDUR [Concomitant]
     Active Substance: ISOSORBIDE MONONITRATE
     Indication: PRODUCT USED FOR UNKNOWN INDICATION
     Dosage: 60 MG, (0.5 MG, IN THE MORNING), QD
     Route: 048
     Dates: start: 20080506
  5. FURIX [Concomitant]
     Active Substance: FUROSEMIDE
     Indication: PRODUCT USED FOR UNKNOWN INDICATION
     Dosage: 40 MG, (3 TABLETS EVERY WEEK)
     Route: 048
     Dates: start: 20121117
  6. FLUNITRAZEPAM [Concomitant]
     Active Substance: FLUNITRAZEPAM
     Indication: SLEEP DISORDER
     Dosage: 0.5 MG, PRN(1 TABLET AT NIGHT WHEN NEEDED; MAX 1 TABLET PER 24 HRS)
     Route: 048
     Dates: start: 20070815
  7. ALISKIREN [Suspect]
     Active Substance: ALISKIREN
     Indication: CARDIAC FAILURE CHRONIC
     Dosage: UNK
     Route: 048
     Dates: start: 20100428
  8. ENALAPRIL [Suspect]
     Active Substance: ENALAPRIL
     Indication: CARDIAC FAILURE CHRONIC
     Dosage: UNK
     Route: 048
     Dates: start: 20100428
  9. OMEPRAZOLE. [Concomitant]
     Active Substance: OMEPRAZOLE
     Indication: PROPHYLAXIS
     Dosage: 20 MG, ONCE/SINGLE
     Route: 048
     Dates: start: 20130528
  10. METOPROLOL [Concomitant]
     Active Substance: METOPROLOL
     Indication: PRODUCT USED FOR UNKNOWN INDICATION
     Dosage: 50 MG, QD
     Route: 065
     Dates: start: 20130419
  11. NITROLINGUAL [Concomitant]
     Active Substance: NITROGLYCERIN
     Indication: PRODUCT USED FOR UNKNOWN INDICATION
     Dosage: 0.4 MG, PRN(1-2 SPRAYS WHEN NEEDED; MAX 6 SPRAYS PER 24 HR)
     Route: 060
     Dates: start: 20130315
  12. TERRA-CORTRIL POLYMYXIN B [Concomitant]
     Active Substance: HYDROCORTISONE\OXYTETRACYCLINE HYDROCHLORIDE\POLYMYXIN B SULFATE
     Indication: INFLAMMATION
     Dosage: 2-4 DROPS IN AUDITORY CANAL 3 TIMES IN A DAY
     Dates: start: 20140318

REACTIONS (1)
  - Syncope [Recovered/Resolved]

NARRATIVE: CASE EVENT DATE: 20140218
